FAERS Safety Report 15670568 (Version 3)
Quarter: 2019Q1

REPORT INFORMATION
  Report Type: Report from Study
  Country: US (occurrence: US)
  Receive Date: 20181129
  Receipt Date: 20190102
  Transmission Date: 20190417
  Serious: Yes (Death)
  Sender: FDA-Public Use
  Company Number: US-PUMA BIOTECHNOLOGY, LTD.-2018US011901

PATIENT

DRUGS (3)
  1. NERLYNX [Suspect]
     Active Substance: NERATINIB
     Indication: BREAST CANCER METASTATIC
     Dosage: 240 MG, 6 TABLETS, DAILY
     Route: 048
     Dates: start: 20180123, end: 2018
  2. NERLYNX [Suspect]
     Active Substance: NERATINIB
     Indication: METASTASES TO CENTRAL NERVOUS SYSTEM
     Dosage: 160 MG (4 TABLETS), DAILY
     Route: 048
     Dates: start: 20180904, end: 2018
  3. RANITIDINE HCL [Concomitant]
     Active Substance: RANITIDINE HYDROCHLORIDE
     Indication: PRODUCT USED FOR UNKNOWN INDICATION

REACTIONS (5)
  - Underdose [Unknown]
  - Death [Fatal]
  - Metastases to central nervous system [Unknown]
  - Off label use [Unknown]
  - Diarrhoea [Unknown]

NARRATIVE: CASE EVENT DATE: 2018
